FAERS Safety Report 16868334 (Version 1)
Quarter: 2019Q3

REPORT INFORMATION
  Report Type: Report from Study
  Country: US (occurrence: US)
  Receive Date: 20190930
  Receipt Date: 20190930
  Transmission Date: 20191005
  Serious: Yes (Other)
  Sender: FDA-Public Use
  Company Number: US-JNJFOC-20190936285

PATIENT
  Age: 65 Year
  Sex: Female

DRUGS (14)
  1. RANITIDINE. [Concomitant]
     Active Substance: RANITIDINE
  2. SYNTHROID [Concomitant]
     Active Substance: LEVOTHYROXINE SODIUM
  3. FISH OIL [Concomitant]
     Active Substance: FISH OIL
  4. IMBRUVICA [Suspect]
     Active Substance: IBRUTINIB
     Indication: WALDENSTROM^S MACROGLOBULINAEMIA
     Dosage: 420 MG, QD
     Route: 048
     Dates: start: 20180417
  5. ALLOPURINOL. [Concomitant]
     Active Substance: ALLOPURINOL
  6. CRANBERRY                          /01512301/ [Concomitant]
     Active Substance: CRANBERRY
  7. CYCLOBENZAPRINE. [Concomitant]
     Active Substance: CYCLOBENZAPRINE
  8. NYSTATIN. [Concomitant]
     Active Substance: NYSTATIN
  9. ENALAPRIL [Concomitant]
     Active Substance: ENALAPRIL
  10. FUROSEMIDE. [Concomitant]
     Active Substance: FUROSEMIDE
  11. PREVIDENT [Concomitant]
     Active Substance: SODIUM FLUORIDE
  12. TRIAMCINOLONE [Concomitant]
     Active Substance: TRIAMCINOLONE
     Route: 061
  13. MULTIVITAMIN                       /00097801/ [Concomitant]
     Active Substance: VITAMINS
  14. POTASSIUM [Concomitant]
     Active Substance: POTASSIUM

REACTIONS (2)
  - Facial paralysis [Unknown]
  - Road traffic accident [Unknown]

NARRATIVE: CASE EVENT DATE: 20190828
